FAERS Safety Report 4854211-1 (Version None)
Quarter: 2005Q4

REPORT INFORMATION
  Report Type: 
  Country: None (occurrence: None)
  Receive Date: 20051213
  Receipt Date: 20051202
  Transmission Date: 20060501
  Serious: Yes (Other)
  Sender: FDA-Public Use
  Company Number: 2005144672

PATIENT
  Age: 73 Year
  Sex: Female

DRUGS (16)
  1. LYRICA [Suspect]
     Indication: DIABETES MELLITUS INSULIN-DEPENDENT
     Dosage: 150 MG (50 MG, 3 IN 1 D), ORAL
     Route: 048
     Dates: start: 20051010, end: 20051013
  2. TRAZODONE HCL [Concomitant]
  3. METOPROLOL SUCCINATE [Concomitant]
  4. SINGULAIR ^MERCK^ (MONTELUKAST SODIUM) [Concomitant]
  5. LOVASTATIN [Concomitant]
  6. LASIX [Concomitant]
  7. LEVOXYL [Concomitant]
  8. NITROGLYCERIN [Concomitant]
  9. ASPIRIN [Concomitant]
  10. PLAVIX [Concomitant]
  11. POTASSIUM (POTASSIUM) [Concomitant]
  12. PHENERGAN ^AVENTIS PHARMA^ (PROMETHAZINE HYDROCHLORIDE) [Concomitant]
  13. ALBUTEROL [Concomitant]
  14. DURAGESIC-100 [Concomitant]
  15. LANTUS [Concomitant]
  16. DOCUSATE SODIUM (DOCUSATE SODIUM) [Concomitant]

REACTIONS (3)
  - HYPOVOLAEMIA [None]
  - NAUSEA [None]
  - VOMITING [None]
